FAERS Safety Report 9520366 (Version 1)
Quarter: 2013Q3

REPORT INFORMATION
  Report Type: Spontaneous
  Country: DE (occurrence: DE)
  Receive Date: 20130912
  Receipt Date: 20130912
  Transmission Date: 20140515
  Serious: Yes (Other)
  Sender: FDA-Public Use
  Company Number: DE-BAYER-2013-109246

PATIENT
  Age: 85 Year
  Sex: Female

DRUGS (8)
  1. CIPROFLOXACIN [Suspect]
  2. SIMVASTATIN [Interacting]
  3. PROCORALAN [Concomitant]
     Dosage: 5 MG, UNK
  4. BELOC ZOK [Concomitant]
  5. RAMIPRIL [Concomitant]
  6. LEVOTHYROXINE SODIUM [Concomitant]
  7. ALLOPURINOL [Concomitant]
  8. PANTOPRAZOLE [Concomitant]

REACTIONS (9)
  - Crush syndrome [None]
  - Myalgia [None]
  - Gait disturbance [None]
  - Blood creatine phosphokinase increased [Recovering/Resolving]
  - Transaminases increased [Recovering/Resolving]
  - Gamma-glutamyltransferase abnormal [Recovering/Resolving]
  - Blood lactate dehydrogenase increased [Recovering/Resolving]
  - Creatinine renal clearance decreased [None]
  - Drug interaction [None]
